FAERS Safety Report 22207201 (Version 13)
Quarter: 2023Q4

REPORT INFORMATION
  Report Type: Report from Study
  Country: US (occurrence: US)
  Receive Date: 20230413
  Receipt Date: 20231026
  Transmission Date: 20240110
  Serious: Yes (Hospitalization, Other)
  Sender: FDA-Public Use
  Company Number: US-GILEAD-2023-0622600

PATIENT
  Age: 80 Year
  Sex: Female

DRUGS (4)
  1. AMBRISENTAN [Suspect]
     Active Substance: AMBRISENTAN
     Indication: Pulmonary arterial hypertension
     Dosage: 10 MG, QD
     Route: 065
     Dates: start: 20200115
  2. ADEMPAS [Suspect]
     Active Substance: RIOCIGUAT
     Indication: Product used for unknown indication
     Route: 065
  3. ELIQUIS [Concomitant]
     Active Substance: APIXABAN
  4. TRAMADOL [Concomitant]
     Active Substance: TRAMADOL\TRAMADOL HYDROCHLORIDE

REACTIONS (23)
  - Chest pain [Unknown]
  - Chest discomfort [Unknown]
  - Pneumonia [Not Recovered/Not Resolved]
  - Ascites [Not Recovered/Not Resolved]
  - Squamous cell carcinoma of skin [Unknown]
  - Dyspnoea exertional [Not Recovered/Not Resolved]
  - Fatigue [Not Recovered/Not Resolved]
  - Regurgitation [Unknown]
  - Malaise [Unknown]
  - Cough [Not Recovered/Not Resolved]
  - Wheezing [Unknown]
  - Rales [Unknown]
  - Dyspnoea [Recovering/Resolving]
  - Contusion [Unknown]
  - Dizziness [Unknown]
  - Vomiting [Recovered/Resolved]
  - Hypotension [Unknown]
  - Joint swelling [Not Recovered/Not Resolved]
  - Weight increased [Unknown]
  - Back pain [Unknown]
  - Infection [Unknown]
  - Gastrooesophageal reflux disease [Unknown]
  - Dizziness postural [Unknown]

NARRATIVE: CASE EVENT DATE: 20230602
